FAERS Safety Report 7030389-9 (Version None)
Quarter: 2010Q4

REPORT INFORMATION
  Report Type: 
  Country: None (occurrence: None)
  Receive Date: 20101006
  Receipt Date: 20100928
  Transmission Date: 20110411
  Serious: Yes (Life-Threatening, Other)
  Sender: FDA-Public Use
  Company Number: US-BAXTER-2010BH023431

PATIENT
  Age: 65 Year
  Sex: Male
  Weight: 87 kg

DRUGS (9)
  1. GAMMAGARD LIQUID [Suspect]
     Indication: CHRONIC INFLAMMATORY DEMYELINATING POLYRADICULONEUROPATHY
     Route: 042
     Dates: start: 20100801, end: 20100909
  2. GAMMAGARD LIQUID [Suspect]
     Indication: OFF LABEL USE
     Route: 042
     Dates: start: 20100801, end: 20100909
  3. DIPHENHYDRAMINE [Concomitant]
     Indication: PREMEDICATION
     Route: 048
  4. TYLENOL [Concomitant]
     Indication: PREMEDICATION
     Route: 048
  5. ASPIRIN [Concomitant]
     Indication: PREMEDICATION
     Route: 048
  6. PREDNISONE [Concomitant]
     Route: 048
  7. SYNTHROID [Concomitant]
     Route: 048
  8. NEUROXIN [Concomitant]
     Route: 048
  9. NORMAL SALINE [Concomitant]

REACTIONS (10)
  - BLOOD GLUCOSE INCREASED [None]
  - HAEMOGLOBIN DECREASED [None]
  - INFUSION SITE ERYTHEMA [None]
  - MUSCLE TIGHTNESS [None]
  - NODULE [None]
  - RED BLOOD CELL COUNT DECREASED [None]
  - RED CELL DISTRIBUTION WIDTH INCREASED [None]
  - TENDERNESS [None]
  - THROMBOPHLEBITIS SUPERFICIAL [None]
  - VEIN DISORDER [None]
